FAERS Safety Report 12952898 (Version 2)
Quarter: 2016Q4

REPORT INFORMATION
  Report Type: Spontaneous
  Country: US (occurrence: US)
  Receive Date: 20161117
  Receipt Date: 20161221
  Transmission Date: 20170207
  Serious: No
  Sender: FDA-Public Use
  Company Number: US-NOVOPROD-477666

PATIENT
  Age: 70 Year
  Sex: Male

DRUGS (3)
  1. NOVOLOG [Suspect]
     Active Substance: INSULIN ASPART
     Indication: TYPE 3 DIABETES MELLITUS
     Dosage: UNK
     Route: 058
     Dates: end: 201601
  2. JANUMET [Concomitant]
     Active Substance: METFORMIN HYDROCHLORIDE\SITAGLIPTIN PHOSPHATE
     Indication: TYPE 3 DIABETES MELLITUS
     Route: 058
  3. LEVEMIR [Suspect]
     Active Substance: INSULIN DETEMIR
     Indication: TYPE 3 DIABETES MELLITUS
     Dosage: UNK
     Route: 058
     Dates: end: 201601

REACTIONS (6)
  - Dizziness [Recovered/Resolved]
  - Local swelling [Not Recovered/Not Resolved]
  - Headache [Recovered/Resolved]
  - Blood pressure increased [Unknown]
  - Swelling [Recovered/Resolved]
  - Blood glucose increased [Unknown]
